FAERS Safety Report 4369761-4 (Version None)
Quarter: 2004Q2

REPORT INFORMATION
  Report Type: 
  Country: None (occurrence: None)
  Receive Date: 20040528
  Receipt Date: 20040519
  Transmission Date: 20050107
  Serious: No
  Sender: FDA-Public Use
  Company Number: 2004UW10824

PATIENT

DRUGS (1)
  1. FASLODEX [Suspect]

REACTIONS (1)
  - CARDIAC FAILURE CONGESTIVE [None]
